FAERS Safety Report 8413683-6 (Version None)
Quarter: 2012Q2

REPORT INFORMATION
  Report Type: 
  Country: None (occurrence: None)
  Receive Date: 20120605
  Receipt Date: 20090716
  Transmission Date: 20120825
  Serious: No
  Sender: FDA-Public Use
  Company Number: DK-ROCHE-644150

PATIENT
  Sex: Female
  Weight: 68.4 kg

DRUGS (4)
  1. ALMINOX [Concomitant]
     Route: 048
  2. CENTYL-K [Concomitant]
     Indication: HYPERTENSION
     Route: 048
  3. BONIVA [Suspect]
     Indication: PRODUCT USED FOR UNKNOWN INDICATION
     Route: 042
  4. ASPIRIN [Concomitant]

REACTIONS (5)
  - HEADACHE [None]
  - RESTLESS LEGS SYNDROME [None]
  - NAUSEA [None]
  - MUSCLE SPASMS [None]
  - ARTHRALGIA [None]
